FAERS Safety Report 7168045-9 (Version None)
Quarter: 2010Q4

REPORT INFORMATION
  Report Type: 
  Country: None (occurrence: None)
  Receive Date: 20101216
  Receipt Date: 20101202
  Transmission Date: 20110411
  Serious: No
  Sender: FDA-Public Use
  Company Number: US-PFIZER INC-US-WYE-H18524410

PATIENT
  Age: 62 Year
  Sex: Female
  Weight: 65.76 kg

DRUGS (2)
  1. ADVIL [Suspect]
     Indication: MUSCLE STRAIN
     Dosage: 2 DF, SINGLE
     Route: 048
     Dates: start: 20101025, end: 20101025
  2. ADVIL [Suspect]
     Dosage: 4 DF, UNK
     Route: 048
     Dates: start: 20100101

REACTIONS (1)
  - DRUG EFFECT DECREASED [None]
